FAERS Safety Report 18600390 (Version 1)
Quarter: 2020Q4

REPORT INFORMATION
  Report Type: Spontaneous
  Country: IT (occurrence: IT)
  Receive Date: 20201210
  Receipt Date: 20201210
  Transmission Date: 20210114
  Serious: Yes (Hospitalization)
  Sender: FDA-Public Use
  Company Number: IT-PFIZER INC-2020486549

PATIENT
  Age: 67 Year
  Sex: Female

DRUGS (2)
  1. TACHIDOL [Suspect]
     Active Substance: ACETAMINOPHEN\CODEINE PHOSPHATE
     Dosage: 4 DF TOTAL
     Route: 048
     Dates: start: 20190221, end: 20190221
  2. HALCION [Suspect]
     Active Substance: TRIAZOLAM
     Dosage: 8 DF TOTAL
     Route: 048
     Dates: start: 20190221, end: 20190221

REACTIONS (4)
  - Loss of consciousness [Recovering/Resolving]
  - Oxygen saturation decreased [Recovering/Resolving]
  - Bradycardia [Recovering/Resolving]
  - Drug abuse [Recovering/Resolving]

NARRATIVE: CASE EVENT DATE: 20190221
